FAERS Safety Report 15311219 (Version 1)
Quarter: 2018Q3

REPORT INFORMATION
  Report Type: Spontaneous
  Country: IE (occurrence: IE)
  Receive Date: 20180823
  Receipt Date: 20180823
  Transmission Date: 20181010
  Serious: Yes (Death, Hospitalization, Other)
  Sender: FDA-Public Use
  Company Number: IE-APOTEX-2018AP019633

PATIENT
  Age: 50 Year
  Sex: Male

DRUGS (15)
  1. TACROLIMUS. [Suspect]
     Active Substance: TACROLIMUS
     Dosage: UNK (AS PER THERAPEUTIC LEVELS)
     Route: 065
  2. VORICONAZOLE. [Suspect]
     Active Substance: VORICONAZOLE
     Indication: ASPERGILLUS INFECTION
     Dosage: 400 MG, Q.12H (LOADING DOSE)
     Route: 048
  3. CASPOFUNGIN [Concomitant]
     Active Substance: CASPOFUNGIN
     Dosage: 50 MG, QD (ONCE EVERY 24 HOURS) (MAINTENANCE DOSE)
     Route: 042
  4. PIPERACILLIN/TAZOBACTAM [Concomitant]
     Active Substance: PIPERACILLIN SODIUM\TAZOBACTAM SODIUM
     Indication: PRODUCT USED FOR UNKNOWN INDICATION
     Dosage: 4.5, ONCE EVERY EIGHT HOURS
     Route: 042
  5. VORICONAZOLE. [Suspect]
     Active Substance: VORICONAZOLE
     Dosage: UNK
     Route: 065
  6. VALACICLOVIR [Concomitant]
     Active Substance: VALACYCLOVIR HYDROCHLORIDE
     Indication: ANTIVIRAL PROPHYLAXIS
     Dosage: UNK
     Route: 065
  7. PHENOXYMETHYLPENICILLIN [Concomitant]
     Active Substance: PENICILLIN V
     Indication: ANTIBIOTIC PROPHYLAXIS
     Dosage: UNK
     Route: 065
  8. OSELTAMIVIR                        /01400102/ [Concomitant]
     Indication: INFLUENZA
     Dosage: UNK
     Route: 065
  9. CASPOFUNGIN [Concomitant]
     Active Substance: CASPOFUNGIN
     Indication: PRODUCT USED FOR UNKNOWN INDICATION
     Dosage: 70 MG, QD (ONCE EVERY 24 HOURS) (LOADING DOSE)
     Route: 042
  10. VORICONAZOLE. [Suspect]
     Active Substance: VORICONAZOLE
     Dosage: 200 MG, Q.12H
     Route: 048
  11. PREDNISOLONE. [Suspect]
     Active Substance: PREDNISOLONE
     Dosage: UNK (TAPERED DOSE)
     Route: 065
  12. TACROLIMUS. [Suspect]
     Active Substance: TACROLIMUS
     Indication: IMMUNOSUPPRESSION
     Dosage: 0.2 MG, QD
     Route: 048
  13. MYCOPHENOLATE [Suspect]
     Active Substance: MYCOPHENOLIC ACID
     Indication: IMMUNOSUPPRESSANT DRUG THERAPY
     Dosage: 500 MG, BID
     Route: 065
  14. PREDNISOLONE. [Suspect]
     Active Substance: PREDNISOLONE
     Indication: IMMUNOSUPPRESSION
     Dosage: 40 MG, QD (ONCE DAILY)
     Route: 048
  15. POSACONAZOLE [Suspect]
     Active Substance: POSACONAZOLE
     Indication: ANTIFUNGAL PROPHYLAXIS
     Dosage: 200 MG, ONCE EVERY EIGHT HOURS
     Route: 065

REACTIONS (9)
  - Influenza [Not Recovered/Not Resolved]
  - Adenovirus infection [Unknown]
  - Drug resistance [Fatal]
  - Citrobacter infection [Unknown]
  - Bronchopulmonary aspergillosis [Fatal]
  - Minimum inhibitory concentration increased [Fatal]
  - Drug ineffective [Unknown]
  - Stenotrophomonas infection [Fatal]
  - Proteus infection [Unknown]
